FAERS Safety Report 26007036 (Version 1)
Quarter: 2025Q4

REPORT INFORMATION
  Report Type: Spontaneous
  Country: JP (occurrence: JP)
  Receive Date: 20251106
  Receipt Date: 20251106
  Transmission Date: 20260117
  Serious: Yes (Hospitalization)
  Sender: PFIZER
  Company Number: JP-PFIZER INC-PV202500129116

PATIENT
  Age: 83 Year
  Sex: Male
  Weight: 61 kg

DRUGS (5)
  1. AZULFIDINE EN-TABS [Suspect]
     Active Substance: SULFASALAZINE
     Indication: Rheumatoid arthritis
     Dosage: 500 MG, 2X/DAY (500 MG/12 HOURS)
     Route: 048
     Dates: start: 20250826, end: 20251005
  2. PREDONINE [Concomitant]
     Active Substance: PREDNISOLONE
     Dosage: UNK
     Route: 048
     Dates: start: 20250826
  3. VONOPRAZAN FUMARATE [Concomitant]
     Active Substance: VONOPRAZAN FUMARATE
     Dosage: UNK
     Route: 048
     Dates: start: 20250826
  4. FEBUXOSTAT [Concomitant]
     Active Substance: FEBUXOSTAT
     Dosage: UNK
     Route: 048
     Dates: start: 20250909
  5. AROTINOLOL HYDROCHLORIDE [Concomitant]
     Active Substance: AROTINOLOL HYDROCHLORIDE
     Dosage: UNK
     Route: 048
     Dates: start: 20171026

REACTIONS (1)
  - Febrile neutropenia [Recovered/Resolved]

NARRATIVE: CASE EVENT DATE: 20251005
